FAERS Safety Report 24273301 (Version 1)
Quarter: 2024Q3

REPORT INFORMATION
  Report Type: Spontaneous
  Country: CA (occurrence: CA)
  Receive Date: 20240902
  Receipt Date: 20240902
  Transmission Date: 20241017
  Serious: Yes (Other)
  Sender: NOVARTIS
  Company Number: CA-MLMSERVICE-20240730-PI145965-00336-7

PATIENT
  Age: 6 Decade
  Sex: Male

DRUGS (1)
  1. ZOMETA [Suspect]
     Active Substance: ZOLEDRONIC ACID
     Indication: Hypercalcaemia
     Dosage: UNK (LONG-TIME)
     Route: 042
     Dates: start: 202002, end: 202110

REACTIONS (1)
  - Osteonecrosis of jaw [Recovered/Resolved]
